FAERS Safety Report 14752896 (Version 1)
Quarter: 2018Q2

REPORT INFORMATION
  Report Type: Spontaneous
  Country: US (occurrence: US)
  Receive Date: 20180406
  Receipt Date: 20180406
  Transmission Date: 20180711
  Serious: Yes (Hospitalization)
  Sender: FDA-Public Use
  Company Number: None

PATIENT
  Age: 60 Year
  Sex: Male
  Weight: 155.58 kg

DRUGS (2)
  1. BUPRENORPHINE/NALOXONE [Suspect]
     Active Substance: BUPRENORPHINE\NALOXONE
     Indication: PAIN
     Dosage: 1.5 UNITS EVERY DAY SUBLINGUAL?
     Route: 060
     Dates: start: 20110509
  2. ACETAMINOPHEN/HYDROCODONE [Suspect]
     Active Substance: ACETAMINOPHEN\HYDROCODONE
     Indication: PAIN
     Dosage: 325/7.5 MG PRN PO?
     Route: 048
     Dates: start: 20170902, end: 20170903

REACTIONS (11)
  - Infection [None]
  - Back pain [None]
  - Mental status changes [None]
  - Headache [None]
  - Chest pain [None]
  - Streptococcus test positive [None]
  - Somnolence [None]
  - Lethargy [None]
  - Hypotension [None]
  - Confusional state [None]
  - Hypoxia [None]

NARRATIVE: CASE EVENT DATE: 20170903
